FAERS Safety Report 13365465 (Version 1)
Quarter: 2017Q1

REPORT INFORMATION
  Report Type: Spontaneous
  Country: US (occurrence: US)
  Receive Date: 20170323
  Receipt Date: 20170323
  Transmission Date: 20170429
  Serious: Yes (Other)
  Sender: FDA-Public Use
  Company Number: US-ROCHE-1415876

PATIENT
  Age: 70 Year
  Sex: Female
  Weight: 67.65 kg

DRUGS (12)
  1. XOLAIR [Suspect]
     Active Substance: OMALIZUMAB
     Route: 058
     Dates: start: 201108, end: 201108
  2. ASPIRIN. [Concomitant]
     Active Substance: ASPIRIN
  3. FISH OIL [Concomitant]
     Active Substance: FISH OIL
  4. XOLAIR [Suspect]
     Active Substance: OMALIZUMAB
     Indication: ASTHMA
     Route: 058
     Dates: start: 200806
  5. DIOVAN [Concomitant]
     Active Substance: VALSARTAN
  6. UBIQUINONE [Concomitant]
     Active Substance: UBIDECARENONE
  7. ALBUTEROL. [Concomitant]
     Active Substance: ALBUTEROL
  8. KLOR-CON [Concomitant]
     Active Substance: POTASSIUM CHLORIDE
  9. PREVACID [Concomitant]
     Active Substance: LANSOPRAZOLE
  10. NORVASC [Concomitant]
     Active Substance: AMLODIPINE BESYLATE
  11. HYOSCYAMINE. [Concomitant]
     Active Substance: HYOSCYAMINE
  12. RED YEAST [Concomitant]
     Active Substance: YEAST

REACTIONS (4)
  - Non-Hodgkin^s lymphoma [Unknown]
  - Skin mass [Unknown]
  - Malignant melanoma [Unknown]
  - Skin mass [Recovered/Resolved]

NARRATIVE: CASE EVENT DATE: 2011
